FAERS Safety Report 16467612 (Version 2)
Quarter: 2019Q3

REPORT INFORMATION
  Report Type: Spontaneous
  Country: NL (occurrence: NL)
  Receive Date: 20190624
  Receipt Date: 20190705
  Transmission Date: 20191004
  Serious: Yes (Death, Hospitalization, Other)
  Sender: FDA-Public Use
  Company Number: NL-AUROBINDO-AUR-APL-2019-035088

PATIENT

DRUGS (2)
  1. PAROXETIN FILM-COATED TABLET 30MG [Suspect]
     Active Substance: PAROXETINE
     Indication: DEPRESSION
  2. PAROXETIN FILM-COATED TABLET 30MG [Suspect]
     Active Substance: PAROXETINE
     Indication: ANXIETY
     Dosage: 30 MILLIGRAM
     Route: 048
     Dates: start: 20000101, end: 20180301

REACTIONS (2)
  - Partial seizures [Unknown]
  - Completed suicide [Fatal]

NARRATIVE: CASE EVENT DATE: 20180401
